FAERS Safety Report 13210712 (Version 1)
Quarter: 2017Q1

REPORT INFORMATION
  Report Type: Spontaneous
  Country: US (occurrence: US)
  Receive Date: 20170209
  Receipt Date: 20170209
  Transmission Date: 20170428
  Serious: No
  Sender: FDA-Public Use
  Company Number: US-ALLERGAN-1625055US

PATIENT
  Age: 47 Year
  Sex: Female

DRUGS (1)
  1. BOTOX [Suspect]
     Active Substance: ONABOTULINUMTOXINA
     Indication: URINARY INCONTINENCE
     Dosage: 200 UNITS, SINGLE
     Route: 043
     Dates: start: 20151127, end: 20151127

REACTIONS (2)
  - Bladder pain [Unknown]
  - Bladder spasm [Unknown]

NARRATIVE: CASE EVENT DATE: 20151223
